FAERS Safety Report 7018053-3 (Version None)
Quarter: 2010Q3

REPORT INFORMATION
  Report Type: 
  Country: None (occurrence: None)
  Receive Date: 20100928
  Receipt Date: 20100920
  Transmission Date: 20110219
  Serious: Yes (Other)
  Sender: FDA-Public Use
  Company Number: PHHY2010TW62910

PATIENT
  Age: 51 Year
  Sex: Female

DRUGS (1)
  1. ACLASTA [Suspect]
     Indication: OSTEOPOROSIS POSTMENOPAUSAL
     Dosage: 5 MG/100 CC, ONCE PER YEAR
     Route: 042
     Dates: start: 20100524

REACTIONS (2)
  - ANGINA PECTORIS [None]
  - ARTHRALGIA [None]
